FAERS Safety Report 17204996 (Version 5)
Quarter: 2020Q1

REPORT INFORMATION
  Report Type: Report from Study
  Country: None (occurrence: US)
  Receive Date: 20191227
  Receipt Date: 20200217
  Transmission Date: 20200409
  Serious: Yes (Other)
  Sender: FDA-Public Use
  Company Number: US-ABBVIE-19P-163-3206118-00

PATIENT
  Age: 73 Year
  Sex: Female

DRUGS (9)
  1. CALCIUM [Concomitant]
     Active Substance: CALCIUM
     Indication: PRODUCT USED FOR UNKNOWN INDICATION
  2. IMBRUVICA [Suspect]
     Active Substance: IBRUTINIB
     Indication: CHRONIC LYMPHOCYTIC LEUKAEMIA
     Route: 048
     Dates: start: 20191215
  3. IRON [Concomitant]
     Active Substance: IRON
     Indication: PRODUCT USED FOR UNKNOWN INDICATION
  4. METOPROLOL. [Concomitant]
     Active Substance: METOPROLOL
     Indication: PRODUCT USED FOR UNKNOWN INDICATION
  5. VITAMIN C [Concomitant]
     Active Substance: ASCORBIC ACID
     Indication: PRODUCT USED FOR UNKNOWN INDICATION
  6. XYZAL [Concomitant]
     Active Substance: LEVOCETIRIZINE DIHYDROCHLORIDE
     Indication: PRODUCT USED FOR UNKNOWN INDICATION
  7. IMBRUVICA [Suspect]
     Active Substance: IBRUTINIB
     Route: 048
     Dates: start: 20191214
  8. IMBRUVICA [Suspect]
     Active Substance: IBRUTINIB
     Indication: B-CELL SMALL LYMPHOCYTIC LYMPHOMA
     Route: 048
     Dates: start: 20191216
  9. DILTIAZEM. [Concomitant]
     Active Substance: DILTIAZEM
     Indication: PRODUCT USED FOR UNKNOWN INDICATION

REACTIONS (24)
  - Skin ulcer [Not Recovered/Not Resolved]
  - Vulvovaginal mycotic infection [Unknown]
  - Bladder disorder [Unknown]
  - Renal cyst [Unknown]
  - Stomatitis [Unknown]
  - Hypotension [Unknown]
  - Productive cough [Unknown]
  - Urinary tract infection [Unknown]
  - Fatigue [Unknown]
  - Feeling abnormal [Unknown]
  - Abdominal discomfort [Unknown]
  - Vulvovaginal pruritus [Unknown]
  - Pollakiuria [Unknown]
  - Abdominal distension [Unknown]
  - Chronic kidney disease [Unknown]
  - Diarrhoea [Recovered/Resolved]
  - Urine odour abnormal [Unknown]
  - White blood cell count abnormal [Unknown]
  - Chills [Unknown]
  - Urinary incontinence [Unknown]
  - Lower respiratory tract congestion [Unknown]
  - Somnolence [Not Recovered/Not Resolved]
  - Weight increased [Unknown]
  - White blood cell count decreased [Unknown]

NARRATIVE: CASE EVENT DATE: 20191215
